FAERS Safety Report 8235571-0 (Version None)
Quarter: 2012Q1

REPORT INFORMATION
  Report Type: 
  Country: None (occurrence: None)
  Receive Date: 20120326
  Receipt Date: 20120314
  Transmission Date: 20120608
  Serious: Yes (Death)
  Sender: FDA-Public Use
  Company Number: CA-ELI_LILLY_AND_COMPANY-CA201203001754

PATIENT
  Age: 64 Year
  Sex: Male

DRUGS (1)
  1. PROZAC [Suspect]
     Indication: BIPOLAR DISORDER
     Dosage: UNK, UNKNOWN
     Route: 065

REACTIONS (4)
  - DRUG INTERACTION [None]
  - OFF LABEL USE [None]
  - BRONCHITIS [None]
  - ACCIDENTAL POISONING [None]
